FAERS Safety Report 8463378 (Version 2)
Quarter: 2013Q4

REPORT INFORMATION
  Report Type: Spontaneous
  Country: US (occurrence: US)
  Receive Date: 20120316
  Receipt Date: 20131112
  Transmission Date: 20140711
  Serious: Yes (Other)
  Sender: FDA-Public Use
  Company Number: US-ROCHE-1046911

PATIENT
  Age: 26 Year
  Sex: Female
  Weight: 74.91 kg

DRUGS (3)
  1. ACCUTANE [Suspect]
     Indication: ACNE
     Route: 065
     Dates: start: 1995, end: 2001
  2. ACCUTANE [Suspect]
     Dosage: RECEIVED THERAPY WITH ISOTRETINOIN IN MID 1990S
     Route: 065
  3. ACCUTANE [Suspect]
     Route: 065
     Dates: start: 2000, end: 2001

REACTIONS (4)
  - Colitis ulcerative [Unknown]
  - Crohn^s disease [Unknown]
  - Inflammatory bowel disease [Unknown]
  - Irritable bowel syndrome [Unknown]
